FAERS Safety Report 14133773 (Version 5)
Quarter: 2018Q4

REPORT INFORMATION
  Report Type: Report from Study
  Country: US (occurrence: US)
  Receive Date: 20171027
  Receipt Date: 20181202
  Transmission Date: 20190204
  Serious: Yes (Hospitalization, Other)
  Sender: FDA-Public Use
  Company Number: US-AMGEN-USASL2017158961

PATIENT
  Age: 74 Year
  Sex: Female

DRUGS (1)
  1. REPATHA [Suspect]
     Active Substance: EVOLOCUMAB
     Indication: HYPERCHOLESTEROLAEMIA
     Dosage: 140 MG, Q2WK
     Route: 065
     Dates: start: 201708

REACTIONS (7)
  - Angioedema [Unknown]
  - Injection site pain [Unknown]
  - Ill-defined disorder [Unknown]
  - Hospitalisation [Unknown]
  - Back pain [Unknown]
  - Diabetes mellitus [Unknown]
  - Fibromyalgia [Not Recovered/Not Resolved]
